FAERS Safety Report 22524397 (Version 1)
Quarter: 2023Q2

REPORT INFORMATION
  Report Type: Spontaneous
  Country: US (occurrence: US)
  Receive Date: 20230606
  Receipt Date: 20230606
  Transmission Date: 20230721
  Serious: Yes (Other)
  Sender: FDA-Public Use
  Company Number: US-drreddys-LIT/USA/23/0166352

PATIENT
  Age: 27 Year
  Sex: Female

DRUGS (3)
  1. BUDESONIDE [Suspect]
     Active Substance: BUDESONIDE
     Indication: Eosinophilic oesophagitis
     Dosage: HIGH-DOSE ORAL VISCOUS BUDESONIDE
     Route: 048
  2. BUDESONIDE [Suspect]
     Active Substance: BUDESONIDE
     Dosage: LOWER OVB DOSES
     Route: 048
  3. FLUTICASONE [Suspect]
     Active Substance: FLUTICASONE
     Indication: Eosinophilic oesophagitis
     Route: 048

REACTIONS (3)
  - Cushing^s syndrome [Recovering/Resolving]
  - Hypothalamic pituitary adrenal axis suppression [Recovered/Resolved]
  - Product use in unapproved indication [Unknown]
